FAERS Safety Report 6318222-1 (Version None)
Quarter: 2009Q3

REPORT INFORMATION
  Report Type: 
  Country: None (occurrence: None)
  Receive Date: 20090821
  Receipt Date: 20090813
  Transmission Date: 20100115
  Serious: Yes (Other)
  Sender: FDA-Public Use
  Company Number: DE-GILEAD-2009-0023690

PATIENT
  Sex: Male

DRUGS (2)
  1. VIREAD [Suspect]
     Indication: HEPATITIS B VIRUS TEST
     Route: 048
     Dates: start: 20090701
  2. VIREAD [Suspect]
     Indication: HEPATITIS D

REACTIONS (2)
  - HYPOPHOSPHATAEMIA [None]
  - THROMBOCYTOPENIA [None]
